FAERS Safety Report 10058451 (Version 1)
Quarter: 2014Q2

REPORT INFORMATION
  Report Type: Spontaneous
  Country: US (occurrence: US)
  Receive Date: 20140404
  Receipt Date: 20140404
  Transmission Date: 20141212
  Serious: No
  Sender: FDA-Public Use
  Company Number: US-ROXANE LABORATORIES, INC.-2014-RO-00485RO

PATIENT
  Sex: Female

DRUGS (1)
  1. CLARITHROMYCIN [Suspect]
     Indication: SINUS DISORDER
     Dosage: 1000 MG
     Route: 048
     Dates: start: 20140326, end: 20140326

REACTIONS (4)
  - Muscle spasms [Recovered/Resolved]
  - Muscle spasticity [Recovered/Resolved]
  - Rash pruritic [Recovered/Resolved]
  - Upper respiratory tract congestion [Not Recovered/Not Resolved]
